FAERS Safety Report 6297559-9 (Version None)
Quarter: 2009Q3

REPORT INFORMATION
  Report Type: 
  Country: None (occurrence: None)
  Receive Date: 20090805
  Receipt Date: 20090729
  Transmission Date: 20100115
  Serious: Yes (Hospitalization, Other)
  Sender: FDA-Public Use
  Company Number: FR-BRISTOL-MYERS SQUIBB COMPANY-14721963

PATIENT
  Age: 71 Year
  Sex: Male

DRUGS (9)
  1. REYATAZ [Suspect]
     Indication: HIV INFECTION
     Dates: start: 20090318, end: 20090612
  2. ISENTRESS [Concomitant]
  3. NORVIR [Concomitant]
  4. ZIAGEN [Concomitant]
  5. MINISINTROM [Concomitant]
  6. COAPROVEL [Concomitant]
     Dosage: STR: 150MG/12.5MG
  7. ALLOPURINOL [Concomitant]
  8. CITALOPRAM HYDROBROMIDE [Concomitant]
  9. TRIZIVIR [Concomitant]
     Dosage: 1 DF =2 TABLETS, THERAPY CHANGED ON 18MAR2009.
     Dates: start: 20050101

REACTIONS (4)
  - ATRIAL FIBRILLATION [None]
  - CALCULUS URETERIC [None]
  - CHOLELITHIASIS [None]
  - RENAL FAILURE ACUTE [None]
